FAERS Safety Report 9220945 (Version 1)
Quarter: 2013Q2

REPORT INFORMATION
  Report Type: Spontaneous
  Country: FR (occurrence: FR)
  Receive Date: 20130409
  Receipt Date: 20130409
  Transmission Date: 20140414
  Serious: Yes (Hospitalization)
  Sender: FDA-Public Use
  Company Number: FR-GLAXOSMITHKLINE-B0879987A

PATIENT
  Age: 14 Year
  Sex: Female

DRUGS (3)
  1. LAMICTAL [Suspect]
     Indication: EPILEPSY
     Route: 048
     Dates: start: 201109
  2. URBANYL [Suspect]
     Indication: EPILEPSY
     Dosage: 5MG UNKNOWN
     Route: 048
     Dates: start: 201109
  3. ESTROGEN/PROGESTERONE [Concomitant]

REACTIONS (1)
  - Aggression [Recovered/Resolved]
